FAERS Safety Report 4708692-4 (Version None)
Quarter: 2005Q3

REPORT INFORMATION
  Report Type: 
  Country: None (occurrence: None)
  Receive Date: 20050705
  Receipt Date: 20050621
  Transmission Date: 20060218
  Serious: Yes (Hospitalization)
  Sender: FDA-Public Use
  Company Number: 2005-127606-NL

PATIENT
  Age: 50 Year
  Sex: Female

DRUGS (22)
  1. VECURONIUM BROMIDE [Suspect]
     Indication: ANAESTHESIA
     Dosage: NI/2 MG ONCE/1 MG ONCE/1 MG ONCE/1 MG ONCE/1 MG ONCE  INTRAVENOUS (NOS)
     Route: 042
     Dates: start: 20050412, end: 20050412
  2. VECURONIUM BROMIDE [Suspect]
     Indication: ANAESTHESIA
     Dosage: NI/2 MG ONCE/1 MG ONCE/1 MG ONCE/1 MG ONCE/1 MG ONCE  INTRAVENOUS (NOS)
     Route: 042
     Dates: start: 20050412, end: 20050412
  3. VECURONIUM BROMIDE [Suspect]
     Indication: ANAESTHESIA
     Dosage: NI/2 MG ONCE/1 MG ONCE/1 MG ONCE/1 MG ONCE/1 MG ONCE  INTRAVENOUS (NOS)
     Route: 042
     Dates: start: 20050412, end: 20050412
  4. VECURONIUM BROMIDE [Suspect]
     Indication: ANAESTHESIA
     Dosage: NI/2 MG ONCE/1 MG ONCE/1 MG ONCE/1 MG ONCE/1 MG ONCE  INTRAVENOUS (NOS)
     Route: 042
     Dates: start: 20050412, end: 20050412
  5. VECURONIUM BROMIDE [Suspect]
     Indication: ANAESTHESIA
     Dosage: NI/2 MG ONCE/1 MG ONCE/1 MG ONCE/1 MG ONCE/1 MG ONCE  INTRAVENOUS (NOS)
     Route: 042
     Dates: start: 20050412, end: 20050412
  6. VECURONIUM BROMIDE [Suspect]
     Indication: ANAESTHESIA
     Dosage: NI/2 MG ONCE/1 MG ONCE/1 MG ONCE/1 MG ONCE/1 MG ONCE  INTRAVENOUS (NOS)
     Route: 042
     Dates: start: 20050412, end: 20050412
  7. SEVOFLURANE [Suspect]
     Indication: ANAESTHESIA
     Route: 055
     Dates: start: 20050412, end: 20050412
  8. PROPOFOL [Suspect]
     Indication: ANAESTHESIA
     Dosage: INTRAVENOUS (NOS)
     Route: 042
     Dates: start: 20050412, end: 20050412
  9. FENTANYL CITRATE [Concomitant]
  10. LIDOCAINE [Concomitant]
  11. BUPIVACAINE HCL [Concomitant]
  12. FUROSEMIDE [Concomitant]
  13. BROMHEXINE HYDROCHLORIDE [Concomitant]
  14. CEFAZOLIN SODIUM [Concomitant]
  15. BUPRENORPHINE HCL [Concomitant]
  16. DEXPANTHENOL [Concomitant]
  17. ATROPINE SULFATE [Concomitant]
  18. NEOSTIGMINE METILSULFATE [Concomitant]
  19. ETILEPRINE HYDROCHLORIDE [Concomitant]
  20. BROMHEXINE HYDROCHLORIDE [Concomitant]
  21. FAMOTIDINE [Concomitant]
  22. TEPRENONE [Concomitant]

REACTIONS (4)
  - ALANINE AMINOTRANSFERASE INCREASED [None]
  - ASPARTATE AMINOTRANSFERASE INCREASED [None]
  - BLOOD LACTATE DEHYDROGENASE INCREASED [None]
  - HEPATIC FUNCTION ABNORMAL [None]
